FAERS Safety Report 13881640 (Version 1)
Quarter: 2017Q3

REPORT INFORMATION
  Report Type: Spontaneous
  Country: CH (occurrence: CH)
  Receive Date: 20170818
  Receipt Date: 20170818
  Transmission Date: 20171127
  Serious: Yes (Hospitalization)
  Sender: FDA-Public Use
  Company Number: CH-ASTRAZENECA-2017SE80945

PATIENT
  Age: 27123 Day
  Sex: Male

DRUGS (15)
  1. FOLIC ACID. [Concomitant]
     Active Substance: FOLIC ACID
     Dates: start: 201609
  2. SEROPRAM [Interacting]
     Active Substance: CITALOPRAM HYDROBROMIDE
     Route: 048
     Dates: start: 20170708, end: 20170717
  3. VALPROATE SODIUM. [Suspect]
     Active Substance: VALPROATE SODIUM
     Indication: ABNORMAL BEHAVIOUR
     Dosage: 1500.0MG UNKNOWN
     Route: 048
     Dates: start: 20170714
  4. NEXIUM [Suspect]
     Active Substance: ESOMEPRAZOLE MAGNESIUM
     Route: 048
     Dates: start: 201609
  5. SEROQUEL [Concomitant]
     Active Substance: QUETIAPINE FUMARATE
     Dates: start: 20170516
  6. VITAMIN B12 [Concomitant]
     Active Substance: CYANOCOBALAMIN
     Dates: start: 201609, end: 20170518
  7. EFEXOR [Concomitant]
     Active Substance: VENLAFAXINE HYDROCHLORIDE
     Dates: start: 201609, end: 20170704
  8. RISPERDAL [Concomitant]
     Active Substance: RISPERIDONE
     Dates: start: 20170718
  9. CIPRALEX [Concomitant]
     Active Substance: ESCITALOPRAM OXALATE
     Dates: start: 20170706, end: 20170708
  10. SEROQUEL [Concomitant]
     Active Substance: QUETIAPINE FUMARATE
     Dates: end: 20170707
  11. CETRIZINE [Concomitant]
     Active Substance: CETIRIZINE HYDROCHLORIDE
     Dates: start: 201609, end: 20170518
  12. VI DE 3 [Concomitant]
     Dates: start: 201609, end: 20170518
  13. RESONIUM [Concomitant]
     Active Substance: SODIUM POLYSTYRENE SULFONATE
  14. XANAX [Concomitant]
     Active Substance: ALPRAZOLAM
     Dates: start: 201609, end: 20170711
  15. ZYPREXA [Concomitant]
     Active Substance: OLANZAPINE
     Dates: start: 20170706, end: 20170718

REACTIONS (2)
  - Drug interaction [Unknown]
  - Epilepsy [Unknown]

NARRATIVE: CASE EVENT DATE: 20170719
